FAERS Safety Report 14162896 (Version 1)
Quarter: 2017Q4

REPORT INFORMATION
  Report Type: Spontaneous
  Country: US (occurrence: US)
  Receive Date: 20171107
  Receipt Date: 20171107
  Transmission Date: 20180321
  Serious: Yes (Other)
  Sender: FDA-Public Use
  Company Number: US-AMGEN-USASP2017164987

PATIENT
  Age: 68 Year
  Sex: Female

DRUGS (1)
  1. PROLIA [Suspect]
     Active Substance: DENOSUMAB
     Indication: OSTEOPOROSIS POSTMENOPAUSAL
     Dosage: UNK
     Route: 065
     Dates: start: 201706, end: 201706

REACTIONS (9)
  - Emphysema [Unknown]
  - Dry skin [Unknown]
  - Urticaria [Recovered/Resolved]
  - Alopecia [Unknown]
  - Tooth disorder [Unknown]
  - Musculoskeletal discomfort [Unknown]
  - Autoimmune disorder [Unknown]
  - Neck pain [Unknown]
  - Pain in extremity [Unknown]

NARRATIVE: CASE EVENT DATE: 2017
